FAERS Safety Report 17891837 (Version 3)
Quarter: 2020Q3

REPORT INFORMATION
  Report Type: Report from Study
  Country: US (occurrence: US)
  Receive Date: 20200612
  Receipt Date: 20200909
  Transmission Date: 20201103
  Serious: Yes (Other)
  Sender: FDA-Public Use
  Company Number: US-GLAXOSMITHKLINE-US2020AMR095289

PATIENT
  Age: 70 Year
  Sex: Female

DRUGS (3)
  1. NIRAPARIB [Suspect]
     Active Substance: NIRAPARIB
     Dosage: 200 MG, QD
     Dates: start: 20200822
  2. NIRAPARIB [Suspect]
     Active Substance: NIRAPARIB
     Indication: OVARIAN CANCER
     Dosage: 300 MG, QD
     Route: 065
     Dates: start: 20200615
  3. NIRAPARIB [Suspect]
     Active Substance: NIRAPARIB
     Indication: UTERINE CANCER
     Dosage: 300 MG, QD
     Route: 065
     Dates: start: 20200427

REACTIONS (18)
  - Constipation [Unknown]
  - Neck pain [Recovered/Resolved]
  - Product dose omission issue [Unknown]
  - Fatigue [Unknown]
  - Condition aggravated [Unknown]
  - Neuropathy peripheral [Unknown]
  - Blood pressure increased [Unknown]
  - Dizziness [Recovered/Resolved]
  - Balance disorder [Unknown]
  - Headache [Recovered/Resolved]
  - Sluggishness [Unknown]
  - Red blood cell count decreased [Unknown]
  - Food poisoning [Unknown]
  - Urinary tract infection [Unknown]
  - Nausea [Recovered/Resolved]
  - Platelet count decreased [Unknown]
  - Abdominal distension [Unknown]
  - Insomnia [Unknown]

NARRATIVE: CASE EVENT DATE: 20200527
